FAERS Safety Report 19505120 (Version 1)
Quarter: 2021Q3

REPORT INFORMATION
  Report Type: Spontaneous
  Country: ES (occurrence: ES)
  Receive Date: 20210708
  Receipt Date: 20210708
  Transmission Date: 20211014
  Serious: Yes (Other)
  Sender: FDA-Public Use
  Company Number: ES-LUPIN PHARMACEUTICALS INC.-2021-11173

PATIENT
  Age: 44 Year
  Sex: Female

DRUGS (7)
  1. VORICONAZOLE. [Suspect]
     Active Substance: VORICONAZOLE
     Indication: DRUG THERAPY
     Dosage: 200 MILLIGRAM, BID, EVERY 12 HOURS
     Route: 065
  2. LINEZOLID. [Concomitant]
     Active Substance: LINEZOLID
     Indication: DRUG THERAPY
     Dosage: 600 MILLIGRAM, BID, EVERY 12 HOURS
     Route: 065
  3. FLUCONAZOLE. [Concomitant]
     Active Substance: FLUCONAZOLE
     Indication: DRUG THERAPY
     Dosage: 400 MILLIGRAM, BID, EVERY 12 HOURS
     Route: 065
  4. DEXAMETHASONE. [Concomitant]
     Active Substance: DEXAMETHASONE
     Indication: IMMUNOSUPPRESSANT DRUG THERAPY
     Dosage: 4 MILLIGRAM, BID, SCHEDULED FOR 3 MONTHS, EVERY 12 HOURS
     Route: 042
  5. MEROPENEM. [Concomitant]
     Active Substance: MEROPENEM
     Indication: DRUG THERAPY
     Dosage: 1 GRAM, TID, EVERY 8 HOURS
     Route: 065
  6. AMPHOTERICIN?B [Concomitant]
     Active Substance: AMPHOTERICIN B
     Indication: DRUG THERAPY
     Dosage: 5 MILLIGRAM/KILOGRAM, QD, EVERY 24 HOURS
     Route: 065
  7. PREDNISONE. [Concomitant]
     Active Substance: PREDNISONE
     Indication: IMMUNOSUPPRESSANT DRUG THERAPY
     Dosage: 30 MILLIGRAM, QD, EVERY 24 HOURS, SCHEDULED FOR 3 MONTHS
     Route: 048

REACTIONS (1)
  - Cutaneous vasculitis [Unknown]
